FAERS Safety Report 9862294 (Version 2)
Quarter: 2014Q1

REPORT INFORMATION
  Report Type: Spontaneous
  Country: US (occurrence: US)
  Receive Date: 20140203
  Receipt Date: 20140203
  Transmission Date: 20141002
  Serious: Yes (Hospitalization)
  Sender: FDA-Public Use
  Company Number: US-OPTIMER-20130432

PATIENT
  Age: 76 Year
  Sex: Female

DRUGS (21)
  1. DIFICID [Suspect]
     Indication: CLOSTRIDIUM DIFFICILE COLITIS
     Dosage: 200 MG, BID
     Route: 048
  2. ZOFRAN [Concomitant]
     Dosage: UNK, PRN
  3. LOVENOX [Concomitant]
     Dosage: UNK, PRN
  4. ASPIRIN [Concomitant]
     Dosage: 81 MG, UNK
  5. GLUCOPHAGE [Concomitant]
     Dosage: 500 UNK, BID
  6. POTASSIUM CHLORIDE [Concomitant]
     Dosage: 20 MEQ, QD EVERY MORNING
  7. LASIX [Concomitant]
     Dosage: 40 MG, QD EVERY MORNING
  8. NICODERM [Concomitant]
     Dosage: 21 MG, QD
  9. PRILOSEC [Concomitant]
     Dosage: 20 UNK, QD EVERY MORNING
  10. TYLENOL [Concomitant]
     Dosage: UNK, PRN
  11. ZOCOR [Concomitant]
     Dosage: 10 UNK, QD EVERY MORNING
  12. VENTOLIN [Concomitant]
     Dosage: UNK
  13. VANCOMYCIN [Concomitant]
     Indication: CLOSTRIDIUM DIFFICILE COLITIS
     Dosage: 125 MG, QID
  14. RESTORIL [Concomitant]
     Dosage: 15 MG, PRN
     Route: 048
  15. VITAMIN B12 [Concomitant]
     Dosage: UNK
  16. VITAMIN C [Concomitant]
     Dosage: UNK
  17. VITAMIN D2 [Concomitant]
     Dosage: UNK
  18. SINEMET [Concomitant]
     Dosage: UNK
  19. MULTIVITAMIN [Concomitant]
     Dosage: UNK
  20. PROBIOTIC [Concomitant]
     Dosage: UNK
  21. OXYGEN [Concomitant]
     Dosage: UNK

REACTIONS (2)
  - Clostridium difficile colitis [Unknown]
  - Disease recurrence [Unknown]
